FAERS Safety Report 15530903 (Version 1)
Quarter: 2018Q4

REPORT INFORMATION
  Report Type: Report from Study
  Country: None (occurrence: BR)
  Receive Date: 20181018
  Receipt Date: 20181018
  Transmission Date: 20190205
  Serious: Yes (Death, Hospitalization)
  Sender: FDA-Public Use
  Company Number: BR-ABBVIE-18K-020-2523151-00

PATIENT
  Age: 55 Year
  Sex: Male
  Weight: 68 kg

DRUGS (1)
  1. HUMIRA [Suspect]
     Active Substance: ADALIMUMAB
     Indication: HIDRADENITIS
     Route: 058
     Dates: start: 20171121, end: 20181002

REACTIONS (4)
  - Respiratory failure [Fatal]
  - Chronic kidney disease [Fatal]
  - Blood count abnormal [Fatal]
  - Tuberculosis [Fatal]

NARRATIVE: CASE EVENT DATE: 20180928
